FAERS Safety Report 7598342-4 (Version None)
Quarter: 2011Q3

REPORT INFORMATION
  Report Type: 
  Country: None (occurrence: None)
  Receive Date: 20110708
  Receipt Date: 20110628
  Transmission Date: 20111222
  Serious: Yes (Other)
  Sender: FDA-Public Use
  Company Number: PHHY2011MX58566

PATIENT
  Sex: Female

DRUGS (5)
  1. ZOMETA [Suspect]
     Indication: BONE DISORDER
     Dosage: 1 APPLICATION  (4MG/5ML) SINGLE DOSE GLUTEAL AREA
     Route: 030
     Dates: start: 20110529
  2. CALCIUM CARBONATE [Concomitant]
  3. METOCLOPRAMIDE [Concomitant]
  4. BUTILHIOSCINA [Concomitant]
  5. MULTI-VIT [Concomitant]

REACTIONS (2)
  - NEOPLASM [None]
  - INCORRECT ROUTE OF DRUG ADMINISTRATION [None]
